FAERS Safety Report 24433762 (Version 1)
Quarter: 2024Q4

REPORT INFORMATION
  Report Type: Spontaneous
  Country: US (occurrence: US)
  Receive Date: 20241014
  Receipt Date: 20241014
  Transmission Date: 20250115
  Serious: No
  Sender: APOTEX
  Company Number: US-APOTEX-2024AP011794

PATIENT
  Age: 43 Year
  Sex: Male

DRUGS (5)
  1. DOXYCYCLINE [Suspect]
     Active Substance: DOXYCYCLINE
     Indication: Campylobacter bacteraemia
     Dosage: UNK
     Route: 065
     Dates: start: 202403
  2. AMOXICILLIN\CLAVULANATE POTASSIUM [Suspect]
     Active Substance: AMOXICILLIN\CLAVULANATE POTASSIUM
     Indication: Campylobacter bacteraemia
     Dosage: UNK, BID
     Route: 065
     Dates: start: 202212
  3. MOXIFLOXACIN [Suspect]
     Active Substance: MOXIFLOXACIN
     Indication: Campylobacter bacteraemia
     Dosage: UNK
     Route: 065
     Dates: start: 202403
  4. CEFEPIME [Concomitant]
     Active Substance: CEFEPIME HYDROCHLORIDE
     Indication: Campylobacter bacteraemia
     Dosage: UNK
     Route: 065
     Dates: start: 202403
  5. VEDOLIZUMAB [Concomitant]
     Active Substance: VEDOLIZUMAB
     Indication: Gastrointestinal disorder
     Dosage: UNK
     Route: 065

REACTIONS (2)
  - Drug resistance [Unknown]
  - Photosensitivity reaction [Unknown]
